FAERS Safety Report 9274348 (Version 3)
Quarter: 2013Q2

REPORT INFORMATION
  Report Type: Spontaneous
  Country: BR (occurrence: BR)
  Receive Date: 20130506
  Receipt Date: 20130622
  Transmission Date: 20140414
  Serious: Yes (Hospitalization)
  Sender: FDA-Public Use
  Company Number: BR-009507513-1303BRA014005

PATIENT
  Age: 61 Year
  Sex: Female
  Weight: 70 kg

DRUGS (8)
  1. PEGINTRON [Suspect]
     Indication: HEPATITIS C
     Dosage: 80 MICROGRAM, QW
     Route: 058
     Dates: start: 20130219, end: 20130504
  2. VICTRELIS [Suspect]
     Indication: HEPATITIS C
     Dosage: 800 MG, TID
     Route: 048
     Dates: start: 201303, end: 20130504
  3. RIBAVIRIN (NON-MERCK) [Concomitant]
     Indication: HEPATITIS C
     Dosage: 500 MICROGRAM, QAM
     Dates: start: 20130219, end: 20130504
  4. RIBAVIRIN (NON-MERCK) [Concomitant]
     Dosage: 750 MICROGRAM, QPM
     Dates: start: 20130219, end: 20130504
  5. OMEPRAZOLE [Concomitant]
     Indication: PROPHYLAXIS
     Dosage: 20 MG, QD
     Dates: start: 20130218
  6. ANAFRANIL [Concomitant]
     Indication: BRONCHITIS
     Dosage: UNK MG, UNKNOWN
     Route: 048
     Dates: start: 1997
  7. RIVOTRIL [Concomitant]
     Indication: DEPRESSION
     Dosage: 2 MG, QPM
     Route: 048
     Dates: start: 1997
  8. RIVOTRIL [Concomitant]
     Indication: BRONCHITIS

REACTIONS (16)
  - Transfusion [Unknown]
  - Anaemia [Recovering/Resolving]
  - Dysstasia [Recovering/Resolving]
  - Eye swelling [Recovered/Resolved]
  - Mouth ulceration [Recovered/Resolved]
  - Eye colour change [Not Recovered/Not Resolved]
  - Feeling abnormal [Unknown]
  - Gingival bleeding [Recovered/Resolved]
  - Insomnia [Not Recovered/Not Resolved]
  - Weight decreased [Recovering/Resolving]
  - Swelling face [Recovered/Resolved]
  - Pyrexia [Recovered/Resolved]
  - Asthenia [Recovered/Resolved]
  - Nausea [Recovered/Resolved]
  - Decreased appetite [Not Recovered/Not Resolved]
  - Platelet count decreased [Recovering/Resolving]
